FAERS Safety Report 9121855 (Version 1)
Quarter: 2013Q1

REPORT INFORMATION
  Report Type: Spontaneous
  Country: GB (occurrence: GB)
  Receive Date: 20130227
  Receipt Date: 20130227
  Transmission Date: 20140127
  Serious: Yes (Other)
  Sender: FDA-Public Use
  Company Number: GB-ABBOTT-13P-167-1054019-00

PATIENT
  Age: 51 Year
  Sex: Female
  Weight: 71.2 kg

DRUGS (8)
  1. KLARICID [Suspect]
     Indication: SINUSITIS
     Route: 048
     Dates: start: 20130130, end: 20130205
  2. LEVEMIR [Interacting]
     Indication: PRODUCT USED FOR UNKNOWN INDICATION
  3. HUMALOG [Interacting]
     Indication: PRODUCT USED FOR UNKNOWN INDICATION
     Dosage: WITH FOOD
  4. LISINOPRIL [Concomitant]
     Indication: PRODUCT USED FOR UNKNOWN INDICATION
  5. ASPIRIN [Concomitant]
     Indication: PRODUCT USED FOR UNKNOWN INDICATION
  6. AMITRIPTYLINE [Concomitant]
     Indication: PRODUCT USED FOR UNKNOWN INDICATION
  7. SIMVASTATIN [Concomitant]
     Indication: PRODUCT USED FOR UNKNOWN INDICATION
     Dosage: STOPPED WHILST TAKING CLARITHROMYCIN
  8. ANTIBIOTICS [Concomitant]
     Indication: SINUSITIS

REACTIONS (8)
  - Heart rate increased [Unknown]
  - Hypoglycaemia [Recovered/Resolved]
  - Blood pressure increased [Unknown]
  - Cognitive disorder [Unknown]
  - Anxiety [Unknown]
  - Drug interaction [Unknown]
  - Therapy change [Unknown]
  - Influenza [Unknown]
